FAERS Safety Report 20198619 (Version 2)
Quarter: 2022Q1

REPORT INFORMATION
  Report Type: Report from Study
  Country: FR (occurrence: None)
  Receive Date: 20211217
  Receipt Date: 20220105
  Transmission Date: 20220423
  Serious: Yes (Hospitalization)
  Sender: FDA-Public Use
  Company Number: FR-ROCHE-2974377

PATIENT
  Age: 72 Year
  Sex: Male

DRUGS (15)
  1. ATEZOLIZUMAB [Suspect]
     Active Substance: ATEZOLIZUMAB
     Indication: Neoplasm
     Route: 042
     Dates: end: 20211124
  2. RUCAPARIB [Suspect]
     Active Substance: RUCAPARIB
     Indication: Neoplasm
     Route: 048
     Dates: end: 20211124
  3. ENANTONE LP [Concomitant]
     Active Substance: LEUPROLIDE ACETATE
     Dates: start: 2019
  4. ACETAMINOPHEN\CODEINE PHOSPHATE [Concomitant]
     Active Substance: ACETAMINOPHEN\CODEINE PHOSPHATE
     Dosage: 6 TAB/DAY.
  5. DENOSUMAB [Concomitant]
     Active Substance: DENOSUMAB
     Route: 058
  6. CALCIUM CARBONATE\CHOLECALCIFEROL [Concomitant]
     Active Substance: CALCIUM CARBONATE\CHOLECALCIFEROL
     Dosage: 1000/880 MG EVERYDAY
  7. POLYETHYLENE GLYCOLS [Concomitant]
     Active Substance: POLYETHYLENE GLYCOLS
  8. KARDEGIC [Concomitant]
     Active Substance: ASPIRIN DL-LYSINE
  9. EZETIMIBE [Concomitant]
     Active Substance: EZETIMIBE
  10. SIMVASTATIN [Concomitant]
     Active Substance: SIMVASTATIN
  11. CLOPIDOGREL [Concomitant]
     Active Substance: CLOPIDOGREL BISULFATE
     Dates: end: 20211124
  12. PREDNISONE [Concomitant]
     Active Substance: PREDNISONE
  13. ESOMEPRAZOLE [Concomitant]
     Active Substance: ESOMEPRAZOLE
  14. BISOPROLOL [Concomitant]
     Active Substance: BISOPROLOL
     Dates: start: 20211124
  15. TICAGRELOR [Concomitant]
     Active Substance: TICAGRELOR
     Dosage: 1 TABLET
     Dates: start: 20211124

REACTIONS (1)
  - Angina pectoris [Recovered/Resolved]

NARRATIVE: CASE EVENT DATE: 20211123
